FAERS Safety Report 24622017 (Version 1)
Quarter: 2024Q4

REPORT INFORMATION
  Report Type: Report from Study
  Country: KR (occurrence: KR)
  Receive Date: 20241114
  Receipt Date: 20241114
  Transmission Date: 20250115
  Serious: Yes (Hospitalization)
  Sender: ALEXION PHARMACEUTICALS
  Company Number: KR-AstraZeneca-2023A099247

PATIENT
  Age: 55 Year
  Weight: 68 kg

DRUGS (87)
  1. DURVALUMAB [Suspect]
     Active Substance: DURVALUMAB
     Dosage: 690 MG
  2. DURVALUMAB [Suspect]
     Active Substance: DURVALUMAB
     Dosage: 690 MG
  3. DURVALUMAB [Suspect]
     Active Substance: DURVALUMAB
     Dosage: 690 MG
  4. DURVALUMAB [Suspect]
     Active Substance: DURVALUMAB
     Dosage: 690 MG
  5. DURVALUMAB [Suspect]
     Active Substance: DURVALUMAB
     Dosage: 680 MG
  6. DURVALUMAB [Suspect]
     Active Substance: DURVALUMAB
     Dosage: 680 MG
  7. DURVALUMAB [Suspect]
     Active Substance: DURVALUMAB
     Dosage: 680 MG
  8. DURVALUMAB [Suspect]
     Active Substance: DURVALUMAB
     Dosage: 680 MG
  9. DURVALUMAB [Suspect]
     Active Substance: DURVALUMAB
     Dosage: 692 MG
  10. DURVALUMAB [Suspect]
     Active Substance: DURVALUMAB
     Dosage: 692 MG
  11. DURVALUMAB [Suspect]
     Active Substance: DURVALUMAB
     Dosage: 692 MG
  12. DURVALUMAB [Suspect]
     Active Substance: DURVALUMAB
     Dosage: 692 MG
  13. DURVALUMAB [Suspect]
     Active Substance: DURVALUMAB
     Dosage: 680 MG
  14. DURVALUMAB [Suspect]
     Active Substance: DURVALUMAB
     Dosage: 680 MG
  15. DURVALUMAB [Suspect]
     Active Substance: DURVALUMAB
     Dosage: 680 MG
  16. DURVALUMAB [Suspect]
     Active Substance: DURVALUMAB
     Dosage: 680 MG
  17. DURVALUMAB [Suspect]
     Active Substance: DURVALUMAB
     Dosage: 680 MG
  18. DURVALUMAB [Suspect]
     Active Substance: DURVALUMAB
     Dosage: 680 MG
  19. DURVALUMAB [Suspect]
     Active Substance: DURVALUMAB
     Dosage: 680 MG
  20. DURVALUMAB [Suspect]
     Active Substance: DURVALUMAB
     Dosage: 680 MG
  21. DURVALUMAB [Suspect]
     Active Substance: DURVALUMAB
     Dosage: 680 MG
  22. DURVALUMAB [Suspect]
     Active Substance: DURVALUMAB
     Dosage: 680 MG
  23. DURVALUMAB [Suspect]
     Active Substance: DURVALUMAB
     Dosage: 680 MG
  24. DURVALUMAB [Suspect]
     Active Substance: DURVALUMAB
     Dosage: 680 MG
  25. DURVALUMAB [Suspect]
     Active Substance: DURVALUMAB
     Dosage: 680 MG
  26. DURVALUMAB [Suspect]
     Active Substance: DURVALUMAB
     Dosage: 680 MG
  27. DURVALUMAB [Suspect]
     Active Substance: DURVALUMAB
     Dosage: 680 MG
  28. DURVALUMAB [Suspect]
     Active Substance: DURVALUMAB
     Dosage: 680 MG
  29. DURVALUMAB [Suspect]
     Active Substance: DURVALUMAB
     Dosage: 680 MG
  30. DURVALUMAB [Suspect]
     Active Substance: DURVALUMAB
     Dosage: 680 MG
  31. DURVALUMAB [Suspect]
     Active Substance: DURVALUMAB
     Dosage: 680 MG
  32. DURVALUMAB [Suspect]
     Active Substance: DURVALUMAB
     Dosage: 680 MG
  33. DURVALUMAB [Suspect]
     Active Substance: DURVALUMAB
     Dosage: 680 MG
  34. DURVALUMAB [Suspect]
     Active Substance: DURVALUMAB
     Dosage: 680 MG
  35. DURVALUMAB [Suspect]
     Active Substance: DURVALUMAB
     Dosage: 680 MG
  36. DURVALUMAB [Suspect]
     Active Substance: DURVALUMAB
     Dosage: 680 MG
  37. DURVALUMAB [Suspect]
     Active Substance: DURVALUMAB
     Dosage: 680 MG
  38. DURVALUMAB [Suspect]
     Active Substance: DURVALUMAB
     Dosage: 680 MG
  39. DURVALUMAB [Suspect]
     Active Substance: DURVALUMAB
     Dosage: 680 MG
  40. DURVALUMAB [Suspect]
     Active Substance: DURVALUMAB
     Dosage: 680 MG
  41. DURVALUMAB [Suspect]
     Active Substance: DURVALUMAB
     Dosage: 680 MG
  42. DURVALUMAB [Suspect]
     Active Substance: DURVALUMAB
     Dosage: 680 MG
  43. DURVALUMAB [Suspect]
     Active Substance: DURVALUMAB
     Dosage: 680 MG
  44. DURVALUMAB [Suspect]
     Active Substance: DURVALUMAB
     Dosage: 680 MG
  45. DURVALUMAB [Suspect]
     Active Substance: DURVALUMAB
     Dosage: 680 MG
  46. DURVALUMAB [Suspect]
     Active Substance: DURVALUMAB
     Dosage: 680 MG
  47. DURVALUMAB [Suspect]
     Active Substance: DURVALUMAB
     Dosage: 680 MG
  48. DURVALUMAB [Suspect]
     Active Substance: DURVALUMAB
     Dosage: 680 MG
  49. DURVALUMAB [Suspect]
     Active Substance: DURVALUMAB
     Dosage: 671 MG
  50. DURVALUMAB [Suspect]
     Active Substance: DURVALUMAB
     Dosage: 671 MG
  51. DURVALUMAB [Suspect]
     Active Substance: DURVALUMAB
     Dosage: 671 MG
  52. DURVALUMAB [Suspect]
     Active Substance: DURVALUMAB
     Dosage: 671 MG
  53. DURVALUMAB [Suspect]
     Active Substance: DURVALUMAB
     Dosage: 671 MG
  54. DURVALUMAB [Suspect]
     Active Substance: DURVALUMAB
     Dosage: 671 MG
  55. DURVALUMAB [Suspect]
     Active Substance: DURVALUMAB
     Dosage: 671 MG
  56. DURVALUMAB [Suspect]
     Active Substance: DURVALUMAB
     Dosage: 671 MG
  57. DURVALUMAB [Suspect]
     Active Substance: DURVALUMAB
     Dosage: 671 MG
  58. DURVALUMAB [Suspect]
     Active Substance: DURVALUMAB
     Dosage: 671 MG
  59. DURVALUMAB [Suspect]
     Active Substance: DURVALUMAB
     Dosage: 671 MG
  60. DURVALUMAB [Suspect]
     Active Substance: DURVALUMAB
     Dosage: 671 MG
  61. DURVALUMAB [Suspect]
     Active Substance: DURVALUMAB
     Dosage: 671 MG
  62. DURVALUMAB [Suspect]
     Active Substance: DURVALUMAB
     Dosage: 671 MG
  63. DURVALUMAB [Suspect]
     Active Substance: DURVALUMAB
     Dosage: 671 MG
  64. DURVALUMAB [Suspect]
     Active Substance: DURVALUMAB
     Dosage: 671 MG
  65. DURVALUMAB [Suspect]
     Active Substance: DURVALUMAB
     Dosage: 671 MG
  66. DURVALUMAB [Suspect]
     Active Substance: DURVALUMAB
     Dosage: 671 MG
  67. DURVALUMAB [Suspect]
     Active Substance: DURVALUMAB
     Dosage: 671 MG
  68. DURVALUMAB [Suspect]
     Active Substance: DURVALUMAB
     Dosage: 671 MG
  69. DURVALUMAB [Suspect]
     Active Substance: DURVALUMAB
     Dosage: 630 MG
  70. DURVALUMAB [Suspect]
     Active Substance: DURVALUMAB
     Dosage: 630 MG
  71. DURVALUMAB [Suspect]
     Active Substance: DURVALUMAB
     Dosage: 630 MG
  72. DURVALUMAB [Suspect]
     Active Substance: DURVALUMAB
     Dosage: 630 MG
  73. DURVALUMAB [Suspect]
     Active Substance: DURVALUMAB
     Dosage: 630 MG
  74. DURVALUMAB [Suspect]
     Active Substance: DURVALUMAB
     Dosage: 630 MG
  75. DURVALUMAB [Suspect]
     Active Substance: DURVALUMAB
     Dosage: 630 MG
  76. DURVALUMAB [Suspect]
     Active Substance: DURVALUMAB
     Dosage: 630 MG
  77. DURVALUMAB [Suspect]
     Active Substance: DURVALUMAB
     Dosage: 646 MG
  78. DURVALUMAB [Suspect]
     Active Substance: DURVALUMAB
     Dosage: 646 MG
  79. DURVALUMAB [Suspect]
     Active Substance: DURVALUMAB
     Dosage: 646 MG
  80. DURVALUMAB [Suspect]
     Active Substance: DURVALUMAB
     Dosage: 646 MG
  81. SODIUM CHLORIDE [Concomitant]
     Active Substance: SODIUM CHLORIDE
     Indication: Adverse event
     Dosage: 250 ML
  82. PENNEL [Concomitant]
     Indication: Liver injury
  83. PENNEL [Concomitant]
  84. BISOPROLOL FUMARATE [Concomitant]
     Active Substance: BISOPROLOL FUMARATE
     Indication: Hypertension
  85. BISOPROLOL FUMARATE [Concomitant]
     Active Substance: BISOPROLOL FUMARATE
  86. ACETYLCYSTEINE [Concomitant]
     Active Substance: ACETYLCYSTEINE
     Indication: Pituitary tumour removal
  87. ACETYLCYSTEINE [Concomitant]
     Active Substance: ACETYLCYSTEINE

REACTIONS (1)
  - Supraventricular tachycardia [Recovered/Resolved]
